FAERS Safety Report 5285785-7 (Version None)
Quarter: 2007Q1

REPORT INFORMATION
  Report Type: 
  Country: None (occurrence: None)
  Receive Date: 20070126
  Receipt Date: 20061205
  Transmission Date: 20070707
  Serious: No
  Sender: FDA-Public Use
  Company Number: 2006CT001067

PATIENT
  Age: 72 Year
  Sex: Female
  Weight: 72.1219 kg

DRUGS (8)
  1. VENTAVIS [Suspect]
     Indication: PULMONARY HYPERTENSION
     Dosage: 5 UG;6TO9X/DAY;INH
     Route: 055
     Dates: start: 20061102
  2. SILDENAFIL CITRATE [Concomitant]
  3. PRILOSEC [Concomitant]
  4. LASIX [Concomitant]
  5. POTASSIUM CHLORIDE [Concomitant]
  6. FOSAMAX [Concomitant]
  7. EXCEDRIN (MIGRAINE) [Concomitant]
  8. VITAMIN CAP [Concomitant]

REACTIONS (2)
  - COUGH [None]
  - SENSITIVITY OF TEETH [None]
